FAERS Safety Report 4665608-7 (Version None)
Quarter: 2005Q2

REPORT INFORMATION
  Report Type: 
  Country: None (occurrence: None)
  Receive Date: 20050517
  Receipt Date: 20050329
  Transmission Date: 20051028
  Serious: No
  Sender: FDA-Public Use
  Company Number: S05-USA-01610-01

PATIENT
  Age: 70 Year
  Sex: Female

DRUGS (11)
  1. NAMENDA [Suspect]
     Indication: DEMENTIA ALZHEIMER'S TYPE
     Dosage: 15 MG QD PO
     Route: 048
     Dates: start: 20050327
  2. NAMENDA [Suspect]
     Indication: DEMENTIA ALZHEIMER'S TYPE
     Dosage: 5 MG QD PO
     Route: 048
     Dates: start: 20050313, end: 20050319
  3. NAMENDA [Suspect]
     Indication: DEMENTIA ALZHEIMER'S TYPE
     Dosage: 5 MG BID PO
     Route: 048
     Dates: start: 20050320, end: 20050326
  4. ARICEPT [Concomitant]
  5. GABAPENTIN [Concomitant]
  6. SYNTHROID [Concomitant]
  7. FORTEO [Concomitant]
  8. EFFEXOR [Concomitant]
  9. IBUPROFEN [Concomitant]
  10. CENTRIUM SILVER [Concomitant]
  11. CALTRATE + D [Concomitant]

REACTIONS (1)
  - DIZZINESS [None]
